FAERS Safety Report 4484032-3 (Version None)
Quarter: 2004Q4

REPORT INFORMATION
  Report Type: 
  Country: None (occurrence: None)
  Receive Date: 20041025
  Receipt Date: 20030605
  Transmission Date: 20050328
  Serious: Yes (Hospitalization, Other)
  Sender: FDA-Public Use
  Company Number: US-MERCK-0306USA00614

PATIENT
  Age: 57 Year
  Sex: Female

DRUGS (6)
  1. VIOXX [Suspect]
     Indication: ARTHRALGIA
     Route: 048
     Dates: start: 19991203, end: 20011009
  2. PREVACID [Concomitant]
     Indication: REFLUX OESOPHAGITIS
     Route: 048
  3. PREMARIN [Concomitant]
     Route: 048
  4. TRENTAL [Concomitant]
     Indication: PAIN IN EXTREMITY
     Route: 048
  5. PREDNISONE [Concomitant]
     Indication: ARTHRITIS
     Route: 048
  6. AQUAPHOR OINTMENT [Concomitant]
     Indication: DRY SKIN
     Route: 061

REACTIONS (39)
  - ANAEMIA VITAMIN B12 DEFICIENCY [None]
  - ANGINA PECTORIS [None]
  - ARTHRITIS [None]
  - ASTHENIA [None]
  - BLOOD POTASSIUM DECREASED [None]
  - BRONCHITIS ACUTE [None]
  - CAROTID BRUIT [None]
  - CEREBROVASCULAR ACCIDENT [None]
  - CLAUSTROPHOBIA [None]
  - CONJUNCTIVITIS [None]
  - CONVULSION [None]
  - CORONARY ARTERY STENOSIS [None]
  - DENTAL CARIES [None]
  - DIARRHOEA [None]
  - DIZZINESS [None]
  - DYSPNOEA EXERTIONAL [None]
  - FOOT FRACTURE [None]
  - GASTROINTESTINAL HAEMORRHAGE [None]
  - GOITRE [None]
  - HEADACHE [None]
  - HYPERKERATOSIS [None]
  - HYPERTENSION [None]
  - HYPOAESTHESIA [None]
  - INTERMITTENT CLAUDICATION [None]
  - KERATOCONJUNCTIVITIS SICCA [None]
  - LOBAR PNEUMONIA [None]
  - MAMMOGRAM ABNORMAL [None]
  - MUCOSAL ULCERATION [None]
  - MYOCARDIAL INFARCTION [None]
  - NORMAL PRESSURE HYDROCEPHALUS [None]
  - ORTHOPNOEA [None]
  - PEPTIC ULCER [None]
  - PERIPHERAL VASCULAR DISORDER [None]
  - RASH MACULAR [None]
  - SKIN LESION [None]
  - URINARY TRACT INFECTION [None]
  - VENTRICULAR DYSFUNCTION [None]
  - VISION BLURRED [None]
  - VULVOVAGINITIS TRICHOMONAL [None]
